FAERS Safety Report 8484633-1 (Version None)
Quarter: 2012Q3

REPORT INFORMATION
  Report Type: 
  Country: None (occurrence: None)
  Receive Date: 20120703
  Receipt Date: 20120330
  Transmission Date: 20120928
  Serious: No
  Sender: FDA-Public Use
  Company Number: US-TEVA-331924USA

PATIENT
  Sex: Female
  Weight: 69.008 kg

DRUGS (5)
  1. NUVIGIL [Suspect]
     Indication: SLEEP APNOEA SYNDROME
     Dosage: 150 MILLIGRAM;
     Route: 048
     Dates: start: 20120301
  2. NUVIGIL [Suspect]
     Route: 048
     Dates: start: 20120101, end: 20120301
  3. ESTROGENS CONJUGATED [Concomitant]
     Indication: HORMONE REPLACEMENT THERAPY
     Dosage: .9 MILLIGRAM;
     Route: 048
  4. IRON [Concomitant]
     Indication: MEDICAL DIET
     Route: 048
  5. ERGOCALCIFEROL [Concomitant]
     Indication: MEDICAL DIET
     Route: 048

REACTIONS (1)
  - DRUG INEFFECTIVE [None]
